FAERS Safety Report 6443990-8 (Version None)
Quarter: 2009Q4

REPORT INFORMATION
  Report Type: 
  Country: None (occurrence: None)
  Receive Date: 20091116
  Receipt Date: 20091116
  Transmission Date: 20100525
  Serious: Yes (Other)
  Sender: FDA-Public Use
  Company Number: None

PATIENT
  Age: 58 Year
  Sex: Male

DRUGS (1)
  1. MALARONE [Suspect]
     Indication: MALARIA
     Dosage: 250/100 DAILY PO, 24 PILLS
     Route: 048

REACTIONS (1)
  - PSORIASIS [None]
